FAERS Safety Report 6759903-5 (Version None)
Quarter: 2010Q2

REPORT INFORMATION
  Report Type: 
  Country: None (occurrence: None)
  Receive Date: 20100604
  Receipt Date: 20100524
  Transmission Date: 20101027
  Serious: Yes (Other)
  Sender: FDA-Public Use
  Company Number: 231208J09USA

PATIENT
  Age: 48 Year
  Sex: Male
  Weight: 93 kg

DRUGS (5)
  1. REBIF [Suspect]
     Indication: MULTIPLE SCLEROSIS
     Dosage: 44 MCG, 3 IN 1 WK, SUBCUTANEOUS
     Route: 058
     Dates: start: 20070523
  2. MORPHINE SULFATE INJ [Concomitant]
  3. LORAZEPAM [Concomitant]
  4. PENICILLIN (BENZYLPENICILLIN SODIUM) [Concomitant]
  5. CHEMOTHERAPY (OTHER CHEMOTHERAPEUTICS) [Concomitant]

REACTIONS (7)
  - BILE DUCT OBSTRUCTION [None]
  - DIABETES MELLITUS [None]
  - EXCORIATION [None]
  - INJECTION SITE HAEMATOMA [None]
  - INJECTION SITE PAIN [None]
  - PAIN [None]
  - WEIGHT DECREASED [None]
